FAERS Safety Report 7403502-9 (Version None)
Quarter: 2011Q2

REPORT INFORMATION
  Report Type: 
  Country: None (occurrence: None)
  Receive Date: 20110408
  Receipt Date: 20110330
  Transmission Date: 20111010
  Serious: Yes (Other)
  Sender: FDA-Public Use
  Company Number: US-ASTRAZENECA-2011SE18194

PATIENT
  Age: 49 Year
  Sex: Male
  Weight: 60.8 kg

DRUGS (11)
  1. SEROQUEL [Suspect]
     Route: 048
  2. SEROQUEL [Suspect]
     Route: 048
  3. SEROQUEL [Suspect]
     Route: 048
     Dates: start: 20100701
  4. SEROQUEL [Suspect]
     Route: 048
     Dates: start: 20100701
  5. SEROQUEL [Suspect]
     Route: 048
     Dates: start: 20100701
  6. SEROQUEL [Suspect]
     Route: 048
     Dates: start: 20100701
  7. ALPRAZOLAM [Concomitant]
  8. SEROQUEL [Suspect]
     Indication: BIPOLAR DISORDER
     Dosage: 25 MG
     Route: 048
     Dates: start: 20070101
  9. SEROQUEL [Suspect]
     Indication: MANIA
     Dosage: 25 MG
     Route: 048
     Dates: start: 20070101
  10. SEROQUEL [Suspect]
     Route: 048
     Dates: start: 20100701
  11. SEROQUEL [Suspect]
     Route: 048
     Dates: start: 20100701

REACTIONS (4)
  - ABDOMINAL DISCOMFORT [None]
  - HOMICIDAL IDEATION [None]
  - TACHYPHRENIA [None]
  - DRUG DOSE OMISSION [None]
